FAERS Safety Report 10486202 (Version 1)
Quarter: 2014Q3

REPORT INFORMATION
  Report Type: Spontaneous
  Country: US (occurrence: None)
  Receive Date: 20140926
  Receipt Date: 20140926
  Transmission Date: 20150326
  Serious: Yes (Hospitalization)
  Sender: FDA-Public Use
  Company Number: 268K

PATIENT
  Age: 55 Year
  Sex: Female

DRUGS (4)
  1. HCTZ 12.5MG QD [Concomitant]
  2. ATENOLOL 25MG BID [Concomitant]
  3. EAR RINGING - 10X, 30X, LM1; KING BIO [Suspect]
     Active Substance: HOMEOPATHICS
     Indication: TINNITUS
     Dosage: 3 SPRAYS
     Route: 048
  4. LOSARTAN 50MG QD [Concomitant]

REACTIONS (6)
  - Fall [None]
  - Syncope [None]
  - Drug ineffective [None]
  - Electrolyte depletion [None]
  - Diarrhoea [None]
  - Dehydration [None]

NARRATIVE: CASE EVENT DATE: 20140723
